FAERS Safety Report 13301309 (Version 4)
Quarter: 2017Q2

REPORT INFORMATION
  Report Type: Spontaneous
  Country: US (occurrence: US)
  Receive Date: 20170307
  Receipt Date: 20170418
  Transmission Date: 20170830
  Serious: No
  Sender: FDA-Public Use
  Company Number: US-PFIZER INC-2017095060

PATIENT
  Age: 56 Year
  Sex: Female

DRUGS (1)
  1. PREMPRO [Suspect]
     Active Substance: ESTROGENS, CONJUGATED\MEDROXYPROGESTERONE ACETATE
     Indication: MENOPAUSAL SYMPTOMS
     Dosage: UNK, ^2.5 WEEKS^

REACTIONS (3)
  - Feeling of body temperature change [Unknown]
  - Irritability [Recovered/Resolved]
  - Abdominal distension [Recovered/Resolved]
